FAERS Safety Report 5152666-9 (Version None)
Quarter: 2006Q4

REPORT INFORMATION
  Report Type: 
  Country: None (occurrence: None)
  Receive Date: 20061109
  Receipt Date: 20061027
  Transmission Date: 20070319
  Serious: Yes (Hospitalization)
  Sender: FDA-Public Use
  Company Number: 2006132725

PATIENT
  Age: 57 Year
  Sex: Male

DRUGS (1)
  1. LYRICA [Suspect]
     Dosage: 25 MG
     Dates: start: 20060101, end: 20060101

REACTIONS (1)
  - MYOCLONUS [None]
